FAERS Safety Report 5710495-9 (Version None)
Quarter: 2008Q2

REPORT INFORMATION
  Report Type: 
  Country: None (occurrence: None)
  Receive Date: 20080414
  Receipt Date: 20080407
  Transmission Date: 20081010
  Serious: Yes (Life-Threatening, Hospitalization, Disabling)
  Sender: FDA-Public Use
  Company Number: 2008SP006309

PATIENT
  Age: 55 Year
  Sex: Male
  Weight: 80 kg

DRUGS (3)
  1. TEMODAL [Suspect]
     Indication: GLIOBLASTOMA MULTIFORME
     Dosage: 150 MG;QD;PO
     Route: 048
     Dates: start: 20080114, end: 20080228
  2. DEXAMETHASONE [Concomitant]
  3. PHENYTOIN [Concomitant]

REACTIONS (4)
  - CONFUSIONAL STATE [None]
  - FEBRILE NEUTROPENIA [None]
  - MOTOR DYSFUNCTION [None]
  - PANCYTOPENIA [None]
